FAERS Safety Report 4978704-1 (Version None)
Quarter: 2006Q2

REPORT INFORMATION
  Report Type: 
  Country: None (occurrence: None)
  Receive Date: 20060420
  Receipt Date: 20050412
  Transmission Date: 20061013
  Serious: Yes (Hospitalization, Other)
  Sender: FDA-Public Use
  Company Number: US-MERCK-0504USA02083

PATIENT
  Age: 51 Year
  Sex: Male
  Weight: 70 kg

DRUGS (7)
  1. VIOXX [Suspect]
     Indication: ARTHRITIS
     Route: 048
     Dates: start: 20010101, end: 20030401
  2. TIKOSYN [Concomitant]
     Indication: HEART RATE IRREGULAR
     Route: 065
  3. PLAVIX [Concomitant]
     Indication: ANTICOAGULANT THERAPY
     Route: 065
  4. ZOCOR [Concomitant]
     Indication: BLOOD CHOLESTEROL
     Route: 065
  5. ADVAIR DISKUS 100/50 [Concomitant]
     Indication: CHRONIC OBSTRUCTIVE PULMONARY DISEASE
     Route: 065
  6. ASPIRIN [Concomitant]
     Route: 048
  7. METOPROLOL [Concomitant]
     Route: 065

REACTIONS (6)
  - ABDOMINAL PAIN UPPER [None]
  - ANGINA PECTORIS [None]
  - CARDIAC DISORDER [None]
  - CHEST PAIN [None]
  - DEPRESSION [None]
  - MYOCARDIAL INFARCTION [None]
